FAERS Safety Report 24451297 (Version 1)
Quarter: 2024Q4

REPORT INFORMATION
  Report Type: Spontaneous
  Country: US (occurrence: US)
  Receive Date: 20241017
  Receipt Date: 20241017
  Transmission Date: 20250114
  Serious: No
  Sender: MUNDIPHARMA EDO
  Company Number: US-Mundipharma Research Limited-2163237

PATIENT
  Age: 97 Year
  Sex: Female

DRUGS (1)
  1. REZZAYO [Suspect]
     Active Substance: REZAFUNGIN
     Indication: Product used for unknown indication
     Dates: start: 20241008, end: 20241008

REACTIONS (1)
  - Muscle spasms [Recovering/Resolving]

NARRATIVE: CASE EVENT DATE: 20241008
